FAERS Safety Report 13455548 (Version 1)
Quarter: 2017Q2

REPORT INFORMATION
  Report Type: Spontaneous
  Country: US (occurrence: US)
  Receive Date: 20170418
  Receipt Date: 20170418
  Transmission Date: 20170830
  Serious: Yes (Disabling)
  Sender: FDA-Public Use
  Company Number: None

PATIENT
  Age: 39 Year
  Sex: Female
  Weight: 82 kg

DRUGS (2)
  1. OCCASIONAL TEA OR COFFEE [Concomitant]
  2. CIPROFLOXACIN 500 MG TABLETS, 500 MG AUROBINDO [Suspect]
     Active Substance: CIPROFLOXACIN
     Indication: URINARY TRACT INFECTION
     Dosage: ?          QUANTITY:1 TABLET(S);?
     Route: 048
     Dates: start: 20170328, end: 20170401

REACTIONS (15)
  - Paranoia [None]
  - Confusional state [None]
  - Insomnia [None]
  - Depression [None]
  - Restlessness [None]
  - Affective disorder [None]
  - Blood glucose decreased [None]
  - Discomfort [None]
  - Seizure [None]
  - Hunger [None]
  - Nightmare [None]
  - Irritability [None]
  - Tendon rupture [None]
  - Suicidal ideation [None]
  - Mental disorder [None]

NARRATIVE: CASE EVENT DATE: 20170416
